FAERS Safety Report 7288766-7 (Version None)
Quarter: 2011Q1

REPORT INFORMATION
  Report Type: 
  Country: None (occurrence: None)
  Receive Date: 20110211
  Receipt Date: 20110203
  Transmission Date: 20110831
  Serious: Yes (Death, Hospitalization)
  Sender: FDA-Public Use
  Company Number: JP-AMGEN-JPNCT2010009367

PATIENT
  Age: 68 Year
  Sex: Male
  Weight: 59 kg

DRUGS (13)
  1. PANITUMUMAB [Suspect]
     Indication: COLORECTAL CANCER
     Dosage: 6 MG/KG, Q2WK
     Route: 041
     Dates: start: 20100820, end: 20101112
  2. CALCIUM LEVOFOLINATE [Concomitant]
     Indication: COLORECTAL CANCER
     Route: 041
     Dates: start: 20100820, end: 20101112
  3. OXYCONTIN [Concomitant]
     Dosage: UNK
     Route: 048
  4. URINORM [Concomitant]
     Dosage: UNK
     Route: 048
  5. ANTIHISTAMINES [Concomitant]
     Indication: PROPHYLAXIS
     Dosage: UNK
     Route: 065
  6. FLUOROURACIL [Concomitant]
     Route: 041
     Dates: start: 20100820, end: 20101112
  7. ELPLAT [Suspect]
     Indication: COLORECTAL CANCER
     Route: 041
     Dates: start: 20100820, end: 20101112
  8. FLUOROURACIL [Concomitant]
     Indication: COLORECTAL CANCER
     Route: 040
     Dates: start: 20100820, end: 20101112
  9. NORVASC [Suspect]
     Dosage: UNK
     Route: 048
  10. JUUZENTAIHOTOU [Suspect]
     Route: 048
  11. CORTICOSTEROIDS [Concomitant]
     Indication: PROPHYLAXIS
     Dosage: UNK
     Route: 065
  12. CEPHARANTHIN [Concomitant]
     Dosage: UNK
     Route: 048
  13. URALYT [Concomitant]
     Dosage: UNK
     Route: 048

REACTIONS (2)
  - DERMATITIS [None]
  - INTERSTITIAL LUNG DISEASE [None]
